FAERS Safety Report 9815014 (Version 2)
Quarter: 2014Q1

REPORT INFORMATION
  Report Type: Report from Study
  Country: DE (occurrence: DE)
  Receive Date: 20140114
  Receipt Date: 20140120
  Transmission Date: 20141002
  Serious: Yes (Hospitalization)
  Sender: FDA-Public Use
  Company Number: DE-ROCHE-1330842

PATIENT
  Age: 48 Year
  Sex: Female
  Weight: 97 kg

DRUGS (2)
  1. KADCYLA [Suspect]
     Indication: METASTATIC NEOPLASM
     Route: 042
     Dates: start: 20130417, end: 20131128
  2. KADCYLA [Suspect]
     Route: 042

REACTIONS (9)
  - Epistaxis [Not Recovered/Not Resolved]
  - Gastritis erosive [Unknown]
  - Gastrointestinal ulcer [Unknown]
  - Gastric haemorrhage [Not Recovered/Not Resolved]
  - Nausea [Recovered/Resolved]
  - Vomiting [Recovered/Resolved]
  - Pyrexia [Recovered/Resolved]
  - Rash [Recovered/Resolved]
  - Anaemia [Not Recovered/Not Resolved]
